FAERS Safety Report 17922366 (Version 2)
Quarter: 2020Q2

REPORT INFORMATION
  Report Type: Spontaneous
  Country: US (occurrence: US)
  Receive Date: 20200622
  Receipt Date: 20200622
  Transmission Date: 20200714
  Serious: No
  Sender: FDA-Public Use
  Company Number: US-PFIZER INC-2020238264

PATIENT
  Sex: Male

DRUGS (1)
  1. VIAGRA [Suspect]
     Active Substance: SILDENAFIL CITRATE
     Dosage: 25 MG, 2X/DAY,4 HOURS BEFORE BEDTIME AND RIGHT BEFORE SEX (TWICE/DAY)

REACTIONS (3)
  - Drug ineffective [Unknown]
  - Ejaculation disorder [Unknown]
  - Off label use [Unknown]
